FAERS Safety Report 25758465 (Version 2)
Quarter: 2025Q3

REPORT INFORMATION
  Report Type: Spontaneous
  Country: AM (occurrence: AM)
  Receive Date: 20250904
  Receipt Date: 20250908
  Transmission Date: 20251021
  Serious: No
  Sender: Haleon PLC
  Company Number: AM-HALEON-2260789

PATIENT
  Age: 25 Year
  Sex: Male

DRUGS (2)
  1. DICLOFENAC [Suspect]
     Active Substance: DICLOFENAC
     Indication: Familial mediterranean fever
  2. COLCHICINE [Concomitant]
     Active Substance: COLCHICINE
     Indication: Familial mediterranean fever

REACTIONS (1)
  - Intentional product misuse [Unknown]
